FAERS Safety Report 8459708 (Version 2)
Quarter: 2012Q4

REPORT INFORMATION
  Report Type: 
  Country: US (occurrence: US)
  Receive Date: 20120314
  Receipt Date: 20121015
  Transmission Date: 20130627
  Serious: Yes (Other)
  Sender: FDA-Public Use
  Company Number: US-ROCHE-784543

PATIENT
  Age: 16 None
  Sex: Male
  Weight: 143.01 kg

DRUGS (2)
  1. ACCUTANE [Suspect]
     Indication: ACNE
     Route: 065
     Dates: start: 200307, end: 200405
  2. CEPHALEXIN [Concomitant]
     Indication: BRONCHITIS

REACTIONS (11)
  - Colitis ulcerative [Unknown]
  - Inflammatory bowel disease [Unknown]
  - Stress [Unknown]
  - Crohn^s disease [Unknown]
  - Depression [Unknown]
  - Diarrhoea [Recovered/Resolved]
  - Cheilitis [Unknown]
  - Ingrowing nail [Unknown]
  - Epistaxis [Unknown]
  - Upper respiratory tract infection [Unknown]
  - Irritable bowel syndrome [Unknown]
